FAERS Safety Report 8229828-7 (Version None)
Quarter: 2012Q1

REPORT INFORMATION
  Report Type: 
  Country: None (occurrence: None)
  Receive Date: 20120323
  Receipt Date: 20120309
  Transmission Date: 20120608
  Serious: Yes (Death)
  Sender: FDA-Public Use
  Company Number: US-MYLANLABS-2012S1005703

PATIENT
  Age: 66 Year
  Sex: Female

DRUGS (4)
  1. TACROLIMUS [Suspect]
     Indication: STEM CELL TRANSPLANT
     Dosage: TARGET BLOOD LEVEL 5-15 NG/ML
     Route: 065
  2. MELPHALAN HYDROCHLORIDE [Concomitant]
     Indication: STEM CELL TRANSPLANT
     Dosage: 100 MG/M2
     Route: 065
  3. FLUDARABINE PHOSPHATE [Suspect]
     Indication: STEM CELL TRANSPLANT
     Dosage: 5 DOSES OF 24 MG/M2
     Route: 065
  4. ALEMTUZUMAB [Concomitant]
     Indication: STEM CELL TRANSPLANT
     Dosage: 5 DOSES OF 20MG
     Route: 065

REACTIONS (5)
  - CONFUSIONAL STATE [None]
  - AMNESIA [None]
  - HAEMORRHAGIC STROKE [None]
  - TREMOR [None]
  - POSTERIOR REVERSIBLE ENCEPHALOPATHY SYNDROME [None]
